FAERS Safety Report 6960861-9 (Version None)
Quarter: 2010Q3

REPORT INFORMATION
  Report Type: 
  Country: None (occurrence: None)
  Receive Date: 20100830
  Receipt Date: 20100818
  Transmission Date: 20110219
  Serious: Yes (Death, Other)
  Sender: FDA-Public Use
  Company Number: UK-ACCORD-003085

PATIENT
  Age: 48 Year
  Sex: Female

DRUGS (4)
  1. MITOMYCIN [Suspect]
     Indication: ADENOCARCINOMA
     Dosage: INTRAPLEURAL
     Route: 034
  2. DOXOROBUCIN(DOXORUBICIN) [Suspect]
     Indication: ADENOCARCINOMA
     Dosage: INTRAPLEURAL
     Route: 034
  3. FLUOROURACIL [Suspect]
     Indication: ADENOCARCINOMA
     Dosage: INTRAPLEURAL
     Route: 034
  4. LEUCOVORIN(LEUCOVORIN) [Concomitant]

REACTIONS (14)
  - COLON CANCER [None]
  - DISCOMFORT [None]
  - DISEASE PROGRESSION [None]
  - INTERSTITIAL LUNG DISEASE [None]
  - INTESTINAL OBSTRUCTION [None]
  - METASTASES TO PERITONEUM [None]
  - OBSTRUCTION GASTRIC [None]
  - OFF LABEL USE [None]
  - PAIN [None]
  - PNEUMONITIS [None]
  - PULMONARY TOXICITY [None]
  - SCAR [None]
  - SEPSIS [None]
  - WAIST CIRCUMFERENCE INCREASED [None]
